FAERS Safety Report 8029887-0 (Version None)
Quarter: 2012Q1

REPORT INFORMATION
  Report Type: 
  Country: None (occurrence: None)
  Receive Date: 20120109
  Receipt Date: 20111230
  Transmission Date: 20120608
  Serious: Yes (Hospitalization)
  Sender: FDA-Public Use
  Company Number: FR-PFIZER INC-2012003116

PATIENT
  Age: 67 Year
  Sex: Female

DRUGS (15)
  1. FLUCONAZOLE [Suspect]
     Dosage: 100 MG, 2X/DAY
     Route: 042
     Dates: start: 20111117, end: 20111215
  2. LEXOMIL [Suspect]
     Dosage: UNK
     Route: 048
     Dates: start: 20111130, end: 20111204
  3. ASPEGIC 325 [Suspect]
     Dosage: 250 MG, UNK
     Route: 048
     Dates: start: 20111125
  4. HEPARIN CALCIUM [Suspect]
     Dosage: 0.4 ML (10000 UI/0.4ML)
     Route: 058
     Dates: start: 20111126
  5. ATARAX [Suspect]
     Dosage: UNK
     Route: 048
     Dates: start: 20111125, end: 20111129
  6. DEBRIDAT [Suspect]
     Dosage: UNK
     Route: 042
     Dates: start: 20111117, end: 20111202
  7. IMIPENEM [Suspect]
     Dosage: 1000 MG, UNK
     Route: 042
     Dates: start: 20111111, end: 20111214
  8. ALPRAZOLAM [Suspect]
     Dosage: 0.25 MG, UNK
     Route: 048
     Dates: start: 20111205, end: 20111214
  9. VANCOMYCIN HCL [Suspect]
     Dosage: UNK
     Route: 042
     Dates: start: 20111121, end: 20111127
  10. ACETAMINOPHEN [Suspect]
     Dosage: 4 G, UNK
     Route: 042
     Dates: start: 20111125, end: 20111201
  11. LEVOTHYROXINE SODIUM [Suspect]
     Dosage: 20 DF, UNK
     Route: 048
     Dates: start: 20111129
  12. PANTOPRAZOLE [Suspect]
     Dosage: 20 MG, UNK
     Route: 048
     Dates: start: 20111117, end: 20111214
  13. ACETAMINOPHEN [Suspect]
     Dosage: 3 G, UNK
     Route: 048
     Dates: start: 20111130, end: 20111215
  14. DUPHALAC [Suspect]
     Dosage: UNK
     Route: 048
     Dates: end: 20111215
  15. ASPEGIC 325 [Suspect]
     Dosage: 100 MG, UNK
     Route: 048

REACTIONS (1)
  - AGRANULOCYTOSIS [None]
